FAERS Safety Report 24022499 (Version 11)
Quarter: 2024Q3

REPORT INFORMATION
  Report Type: Report from Study
  Country: CN (occurrence: CN)
  Receive Date: 20240627
  Receipt Date: 20240710
  Transmission Date: 20241017
  Serious: No
  Sender: ROCHE
  Company Number: CN-ROCHE-3140819

PATIENT
  Age: 42 Year
  Sex: Female
  Weight: 70.0 kg

DRUGS (52)
  1. ALECTINIB [Suspect]
     Active Substance: ALECTINIB
     Indication: Non-small cell lung cancer metastatic
     Route: 048
     Dates: start: 20210630
  2. MOXIFLOXACIN HYDROCHLORIDE [Concomitant]
     Active Substance: MOXIFLOXACIN HYDROCHLORIDE\MOXIFLOXACIN HYDROCHLORIDE MONOHYDRATE
     Indication: Pneumonia
     Route: 042
     Dates: start: 20210628
  3. FLUTICASONE PROPIONATE\SALMETEROL XINAFOATE [Concomitant]
     Active Substance: FLUTICASONE PROPIONATE\SALMETEROL XINAFOATE
     Indication: Asthma
     Dosage: 1 INHALATION
     Route: 045
     Dates: start: 20210617
  4. BRIGATINIB [Concomitant]
     Active Substance: BRIGATINIB
     Dates: start: 20221122, end: 20221122
  5. BRIGATINIB [Concomitant]
     Active Substance: BRIGATINIB
     Dates: start: 20230422, end: 20230630
  6. CRIZOTINIB [Concomitant]
     Active Substance: CRIZOTINIB
     Dates: start: 20221126, end: 20221202
  7. BUPRENORPHINE TRANSDERMAL SYSTEM [Concomitant]
     Active Substance: BUPRENORPHINE
     Indication: Analgesic therapy
     Route: 062
     Dates: start: 20221115, end: 20221115
  8. VITAMIN C [Concomitant]
     Active Substance: ASCORBIC ACID
     Route: 042
     Dates: start: 20221109, end: 20221113
  9. METHYLPREDNISOLONE SODIUM SUCCINATE [Concomitant]
     Active Substance: METHYLPREDNISOLONE SODIUM SUCCINATE
     Route: 042
     Dates: start: 20221109, end: 20221109
  10. CLINDAMYCIN HYDROCHLORIDE [Concomitant]
     Active Substance: CLINDAMYCIN HYDROCHLORIDE
     Route: 042
     Dates: start: 20221109, end: 20221110
  11. METHYLCOBALAMIN [Concomitant]
     Active Substance: METHYLCOBALAMIN
     Route: 030
     Dates: start: 20221109, end: 20221119
  12. BUDESONIDE [Concomitant]
     Active Substance: BUDESONIDE
     Indication: Cough
     Dates: start: 20221109, end: 20221111
  13. IPRATROPIUM BROMIDE [Concomitant]
     Active Substance: IPRATROPIUM BROMIDE\IPRATROPIUM BROMIDE ANHYDROUS
     Dates: start: 20221109, end: 20221111
  14. OMEPRAZOLE SODIUM [Concomitant]
     Active Substance: OMEPRAZOLE SODIUM
     Route: 042
     Dates: start: 20221109, end: 20221112
  15. ENSARTINIB HYDROCHLORIDE [Concomitant]
     Dates: start: 20221202, end: 20230113
  16. ENSARTINIB HYDROCHLORIDE [Concomitant]
     Dates: start: 20221122, end: 20221122
  17. ENSARTINIB HYDROCHLORIDE [Concomitant]
     Dates: start: 20221203, end: 20230422
  18. IMRECOXIB [Concomitant]
     Active Substance: IMRECOXIB
     Route: 048
     Dates: start: 20230525, end: 20230604
  19. FOLIC ACID [Concomitant]
     Active Substance: FOLIC ACID
     Route: 048
     Dates: start: 20230525, end: 20230525
  20. FOLIC ACID [Concomitant]
     Active Substance: FOLIC ACID
     Route: 048
     Dates: start: 20230522, end: 20230525
  21. FOLIC ACID [Concomitant]
     Active Substance: FOLIC ACID
     Route: 048
     Dates: start: 20230824, end: 20230827
  22. PREGABALIN [Concomitant]
     Active Substance: PREGABALIN
     Indication: Pain
     Route: 048
     Dates: start: 20230525, end: 20230602
  23. DICLOFENAC DIETHYLAMINE [Concomitant]
     Active Substance: DICLOFENAC DIETHYLAMINE
     Indication: Pain
     Route: 061
     Dates: start: 20230522, end: 20230525
  24. COMPOUND PSEUDOEPHEDRINE HYDROCHLORIDE TABLETS [Concomitant]
     Indication: Nasopharyngitis
     Route: 048
     Dates: start: 20230522, end: 20230525
  25. CELECOXIB [Concomitant]
     Active Substance: CELECOXIB
     Indication: Analgesic therapy
     Route: 048
     Dates: start: 20230517, end: 20230522
  26. CYSTEINE\GLYCINE\GLYCYRRHIZIN [Concomitant]
     Active Substance: CYSTEINE\GLYCINE\GLYCYRRHIZIN
     Route: 042
     Dates: start: 20230825, end: 20230825
  27. CALCIUM AND ZINC GLUCONATES [Concomitant]
     Indication: Meniscal degeneration
     Route: 048
     Dates: start: 20230827, end: 20230908
  28. GLUCOSAMINE SULFATE [Concomitant]
     Active Substance: GLUCOSAMINE SULFATE
     Indication: Meniscal degeneration
     Route: 048
     Dates: start: 20230827
  29. FERRIC POLYSACCHARIDE COMPLEX [Concomitant]
     Active Substance: FERRIC POLYSACCHARIDE COMPLEX
     Route: 048
     Dates: start: 20230824, end: 20230906
  30. FERRIC POLYSACCHARIDE COMPLEX [Concomitant]
     Active Substance: FERRIC POLYSACCHARIDE COMPLEX
     Route: 048
     Dates: start: 20221119, end: 20221119
  31. NADROPARIN CALCIUM [Concomitant]
     Active Substance: NADROPARIN CALCIUM
     Route: 042
     Dates: start: 20221113, end: 20221119
  32. EPERISONE HYDROCHLORIDE [Concomitant]
     Active Substance: EPERISONE HYDROCHLORIDE
     Indication: Analgesic therapy
     Route: 048
     Dates: start: 20221112, end: 20221119
  33. IMRECOXIB [Concomitant]
     Active Substance: IMRECOXIB
     Indication: Analgesic therapy
     Route: 048
     Dates: start: 20221112, end: 20221119
  34. CEFTRIAXONE SODIUM [Concomitant]
     Active Substance: CEFTRIAXONE SODIUM
     Route: 042
     Dates: start: 20221111, end: 20221117
  35. VITAMIN C [Concomitant]
     Active Substance: ASCORBIC ACID
     Route: 042
     Dates: start: 20221109, end: 20221109
  36. VITAMIN C [Concomitant]
     Active Substance: ASCORBIC ACID
     Route: 042
     Dates: start: 20221110
  37. VITAMIN C [Concomitant]
     Active Substance: ASCORBIC ACID
     Route: 042
     Dates: start: 20221111
  38. VITAMIN B6 [Concomitant]
     Active Substance: PYRIDOXINE HYDROCHLORIDE
     Route: 042
     Dates: start: 20221109, end: 20221109
  39. VITAMIN B6 [Concomitant]
     Active Substance: PYRIDOXINE HYDROCHLORIDE
     Route: 042
     Dates: start: 20221110
  40. VITAMIN B6 [Concomitant]
     Active Substance: PYRIDOXINE HYDROCHLORIDE
     Route: 042
     Dates: start: 20221111
  41. CALCIUM CHLORIDE\POTASSIUM CHLORIDE\SODIUM CHLORIDE\SODIUM LACTATE [Concomitant]
     Active Substance: CALCIUM CHLORIDE\POTASSIUM CHLORIDE\SODIUM CHLORIDE\SODIUM LACTATE
     Route: 042
     Dates: start: 20221110, end: 20221111
  42. CLINDAMYCIN HYDROCHLORIDE [Concomitant]
     Active Substance: CLINDAMYCIN HYDROCHLORIDE
     Route: 042
     Dates: start: 20221109, end: 20221109
  43. CLINDAMYCIN HYDROCHLORIDE [Concomitant]
     Active Substance: CLINDAMYCIN HYDROCHLORIDE
     Route: 042
     Dates: start: 20221109, end: 20221110
  44. METHYLPREDNISOLONE SODIUM SUCCINATE [Concomitant]
     Active Substance: METHYLPREDNISOLONE SODIUM SUCCINATE
     Route: 042
     Dates: start: 20221109, end: 20221109
  45. METHYLCOBALAMIN [Concomitant]
     Active Substance: METHYLCOBALAMIN
     Route: 042
     Dates: start: 20221109, end: 20221109
  46. TERBUTALINE SULFATE [Concomitant]
     Active Substance: TERBUTALINE SULFATE
     Route: 055
     Dates: start: 20221109, end: 20221111
  47. BUDESONIDE [Concomitant]
     Active Substance: BUDESONIDE
     Route: 055
     Dates: start: 20221109, end: 20221111
  48. OMEPRAZOLE SODIUM [Concomitant]
     Active Substance: OMEPRAZOLE SODIUM
     Route: 042
     Dates: start: 20221109, end: 20221112
  49. DEXTROSE [Concomitant]
     Active Substance: DEXTROSE\DEXTROSE MONOHYDRATE
     Route: 048
     Dates: start: 20221108, end: 20221108
  50. ATROPINE SULFATE [Concomitant]
     Active Substance: ATROPINE SULFATE
     Route: 030
     Dates: start: 20221108, end: 20221108
  51. LYOPHILIZING THROMBIN [Concomitant]
  52. POLYETHYLENE GLYCOL ELECTROLYTES [Concomitant]

REACTIONS (1)
  - Anaemia [Not Recovered/Not Resolved]

NARRATIVE: CASE EVENT DATE: 20220629
